FAERS Safety Report 16810493 (Version 1)
Quarter: 2019Q4

REPORT INFORMATION
  Report Type: Spontaneous
  Country: US (occurrence: US)
  Receive Date: 20190916
  Receipt Date: 20190916
  Transmission Date: 20200122
  Serious: Yes (Hospitalization)
  Sender: FDA-Public Use
  Company Number: None

PATIENT
  Age: 55 Year
  Sex: Male

DRUGS (1)
  1. NEULASTA [Suspect]
     Active Substance: PEGFILGRASTIM
     Indication: CARCINOID TUMOUR
     Dosage: ?          OTHER FREQUENCY:EVERY 14 DAYS;?
     Route: 058

REACTIONS (2)
  - Pain [None]
  - Pyrexia [None]

NARRATIVE: CASE EVENT DATE: 20190913
